FAERS Safety Report 12716770 (Version 3)
Quarter: 2016Q4

REPORT INFORMATION
  Report Type: Spontaneous
  Country: US (occurrence: US)
  Receive Date: 20160906
  Receipt Date: 20161103
  Transmission Date: 20170207
  Serious: Yes (Hospitalization, Other)
  Sender: FDA-Public Use
  Company Number: US-ASTELLAS-2015US040209

PATIENT
  Age: 75 Year
  Sex: Male

DRUGS (1)
  1. XTANDI [Suspect]
     Active Substance: ENZALUTAMIDE
     Indication: PROSTATE CANCER
     Route: 048

REACTIONS (12)
  - Malignant neoplasm progression [Not Recovered/Not Resolved]
  - Increased upper airway secretion [Unknown]
  - Musculoskeletal pain [Unknown]
  - Malaise [Unknown]
  - Prostatic specific antigen increased [Not Recovered/Not Resolved]
  - Pulmonary hypertension [Unknown]
  - Productive cough [Unknown]
  - Back pain [Unknown]
  - Nausea [Unknown]
  - Oedema [Unknown]
  - Urticaria [Unknown]
  - Tremor [Unknown]

NARRATIVE: CASE EVENT DATE: 201510
